FAERS Safety Report 8489714-4 (Version None)
Quarter: 2012Q3

REPORT INFORMATION
  Report Type: 
  Country: None (occurrence: None)
  Receive Date: 20120705
  Receipt Date: 20120423
  Transmission Date: 20120928
  Serious: Yes (Hospitalization)
  Sender: FDA-Public Use
  Company Number: JP-GLAXOSMITHKLINE-B0798925A

PATIENT
  Age: 59 Year
  Sex: Female
  Weight: 60.6 kg

DRUGS (6)
  1. HYCAMTIN [Suspect]
     Indication: OVARIAN CANCER RECURRENT
     Dosage: 1MGM2 PER DAY
     Route: 042
     Dates: start: 20120416, end: 20120416
  2. LANSOPRAZOLE [Concomitant]
     Dosage: 30MG PER DAY
  3. DECADRON [Concomitant]
     Indication: PROPHYLAXIS OF NAUSEA AND VOMITING
     Dosage: 8.25MG PER DAY
     Route: 042
     Dates: start: 20120416, end: 20120420
  4. CEFEPIME [Concomitant]
     Dosage: 3G PER DAY
     Dates: start: 20120423, end: 20120427
  5. FLURBIPROFEN [Concomitant]
     Dosage: 50MG TWICE PER DAY
  6. SANDOSTATIN [Concomitant]
     Dosage: 300MCG PER DAY

REACTIONS (5)
  - RED BLOOD CELL COUNT DECREASED [None]
  - ANAEMIA [None]
  - PLATELET COUNT DECREASED [None]
  - WHITE BLOOD CELL COUNT DECREASED [None]
  - NEUTROPHIL COUNT DECREASED [None]
